FAERS Safety Report 10021352 (Version 2)
Quarter: 2014Q1

REPORT INFORMATION
  Report Type: Spontaneous
  Country: IT (occurrence: None)
  Receive Date: 20140313
  Receipt Date: 20140328
  Transmission Date: 20141002
  Serious: Yes (Hospitalization)
  Sender: FDA-Public Use
  Company Number: AUR-APL-2014-02688

PATIENT
  Age: 85 Year
  Sex: Male

DRUGS (5)
  1. GABAPENTIN [Suspect]
     Indication: SEDATION
     Dosage: 200 MG, TOTAL, ORAL
     Route: 048
     Dates: start: 20140205, end: 20140205
  2. SEROQUEL [Suspect]
     Indication: SEDATION
     Route: 048
     Dates: start: 20140204, end: 20140205
  3. ALPRAZOLAM [Suspect]
     Indication: SEDATION
     Dosage: 40 GTT, TOTAL, ORAL
     Route: 048
     Dates: start: 20140205, end: 20140205
  4. LOBIVON (NEBIVOLOL HYDROCHLORIDE) [Concomitant]
  5. MADOPAR (MADOPAR) [Concomitant]

REACTIONS (4)
  - Erythema [None]
  - Erythema [None]
  - Sopor [None]
  - Off label use [None]
